FAERS Safety Report 10098156 (Version 2)
Quarter: 2014Q2

REPORT INFORMATION
  Report Type: Report from Study
  Country: AU (occurrence: AU)
  Receive Date: 20140423
  Receipt Date: 20140505
  Transmission Date: 20141212
  Serious: Yes (Hospitalization, Disabling)
  Sender: FDA-Public Use
  Company Number: PHHY2014AU045483

PATIENT
  Age: 21 Year
  Sex: Male

DRUGS (2)
  1. SOM230 [Suspect]
     Dosage: 40 MG, ONCE EVERY 28 DAYS
     Route: 030
     Dates: start: 20130725
  2. SOM230 [Suspect]
     Dosage: 40 MG, ONCE EVERY 28 DAYS
     Dates: start: 20140428

REACTIONS (2)
  - Type 2 diabetes mellitus [Unknown]
  - Therapeutic response decreased [Unknown]
